FAERS Safety Report 8070409-6 (Version None)
Quarter: 2012Q1

REPORT INFORMATION
  Report Type: 
  Country: None (occurrence: None)
  Receive Date: 20120125
  Receipt Date: 20120110
  Transmission Date: 20120608
  Serious: Yes (Hospitalization, Other)
  Sender: FDA-Public Use
  Company Number: US-ROCHE-GNE283615

PATIENT
  Sex: Male
  Weight: 86.492 kg

DRUGS (1)
  1. RAPTIVA [Suspect]
     Indication: PSORIASIS
     Dosage: 0.9 ML, 1/WEEK
     Route: 058
     Dates: start: 20040101, end: 20090513

REACTIONS (11)
  - VISION BLURRED [None]
  - DYSPNOEA [None]
  - MIGRAINE [None]
  - UPPER RESPIRATORY TRACT INFECTION [None]
  - LUNG NEOPLASM [None]
  - PSORIATIC ARTHROPATHY [None]
  - PROGRESSIVE MULTIFOCAL LEUKOENCEPHALOPATHY [None]
  - INSOMNIA [None]
  - HEARING IMPAIRED [None]
  - AMNESIA [None]
  - DEPRESSION [None]
